FAERS Safety Report 18338693 (Version 1)
Quarter: 2020Q4

REPORT INFORMATION
  Report Type: Spontaneous
  Country: US (occurrence: US)
  Receive Date: 20201002
  Receipt Date: 20201002
  Transmission Date: 20210113
  Serious: Yes (Hospitalization)
  Sender: FDA-Public Use
  Company Number: None

PATIENT
  Age: 58 Year
  Sex: Male

DRUGS (2)
  1. CEPHALEXIN (CEPHALEXIN 500MG TAB) [Suspect]
     Active Substance: CEPHALEXIN
     Indication: PNEUMONIA
     Route: 048
     Dates: start: 20200730, end: 20200730
  2. AZITHROMYCIN (AZITHROMYCIN 250MG TAB) [Suspect]
     Active Substance: AZITHROMYCIN
     Indication: PNEUMONIA
     Dates: start: 20200730, end: 20200730

REACTIONS (3)
  - Lip blister [None]
  - Throat tightness [None]
  - Swollen tongue [None]

NARRATIVE: CASE EVENT DATE: 20200730
